FAERS Safety Report 15021093 (Version 1)
Quarter: 2018Q2

REPORT INFORMATION
  Report Type: Report from Study
  Country: US (occurrence: US)
  Receive Date: 20180618
  Receipt Date: 20180618
  Transmission Date: 20180711
  Serious: Yes (Other)
  Sender: FDA-Public Use
  Company Number: US-ROCHE-2140089

PATIENT
  Sex: Male

DRUGS (1)
  1. OCREVUS [Suspect]
     Active Substance: OCRELIZUMAB
     Indication: RELAPSING MULTIPLE SCLEROSIS
     Dosage: ONGOING: UNKNOWN, PRESCRIBED 300 MG (DAY 1 AND DAY 15)
     Route: 065
     Dates: start: 20170520

REACTIONS (4)
  - Tremor [Not Recovered/Not Resolved]
  - Malaise [Unknown]
  - Migraine [Unknown]
  - Headache [Not Recovered/Not Resolved]
